FAERS Safety Report 10624589 (Version 1)
Quarter: 2014Q4

REPORT INFORMATION
  Report Type: Spontaneous
  Country: US (occurrence: US)
  Receive Date: 20141203
  Receipt Date: 20141203
  Transmission Date: 20150529
  Serious: No
  Sender: FDA-Public Use
  Company Number: US-GLAXOSMITHKLINE-US2014013288

PATIENT
  Age: 73 Year
  Sex: Male

DRUGS (1)
  1. NICORETTE FRUIT CHILL [Suspect]
     Active Substance: NICOTINE
     Dosage: 2 MG, UNK
     Route: 002
     Dates: start: 2009

REACTIONS (1)
  - Rash papular [Not Recovered/Not Resolved]
